FAERS Safety Report 19192564 (Version 2)
Quarter: 2021Q2

REPORT INFORMATION
  Report Type: Spontaneous
  Country: US (occurrence: US)
  Receive Date: 20210428
  Receipt Date: 20210518
  Transmission Date: 20210717
  Serious: Yes (Other)
  Sender: FDA-Public Use
  Company Number: US-SUNOVION-2021SUN001583

PATIENT
  Age: 43 Year
  Sex: Female

DRUGS (2)
  1. LATUDA [Suspect]
     Active Substance: LURASIDONE HYDROCHLORIDE
     Indication: BIPOLAR DISORDER
     Dosage: 80 MG
     Route: 048
     Dates: start: 201506, end: 20210505
  2. TRILEPTAL [Suspect]
     Active Substance: OXCARBAZEPINE
     Indication: BIPOLAR DISORDER
     Dosage: UNK
     Dates: start: 202103, end: 202104

REACTIONS (3)
  - Tardive dyskinesia [Not Recovered/Not Resolved]
  - Tremor [Not Recovered/Not Resolved]
  - Cogwheel rigidity [Not Recovered/Not Resolved]
